FAERS Safety Report 8339786-2 (Version None)
Quarter: 2012Q2

REPORT INFORMATION
  Report Type: 
  Country: None (occurrence: None)
  Receive Date: 20120507
  Receipt Date: 20120426
  Transmission Date: 20120825
  Serious: Yes (Life-Threatening, Hospitalization)
  Sender: FDA-Public Use
  Company Number: JP-NAPPMUNDI-MAG-2012-0002041

PATIENT
  Sex: Female
  Weight: 49 kg

DRUGS (17)
  1. BUPRENORPHINE [Suspect]
     Indication: PAIN IN EXTREMITY
     Dosage: 5 MCG, Q1H
     Route: 062
     Dates: start: 20120109, end: 20120117
  2. TIZANIDINE HCL [Concomitant]
     Route: 048
  3. VITAMIN B12 [Concomitant]
     Indication: PHARYNGITIS
     Dosage: 1500 MCG, DAILY
     Dates: start: 20040830
  4. LYRICA [Concomitant]
     Indication: PAIN IN EXTREMITY
     Dosage: 150 MG, DAILY
     Route: 048
     Dates: start: 20111219, end: 20120120
  5. LYRICA [Concomitant]
     Dosage: UNK
     Dates: start: 20111027
  6. PAXIL [Concomitant]
     Indication: PAIN IN EXTREMITY
     Dosage: 10 MG, UNK
     Route: 048
  7. TRAMADOL HYDROCHLORIDE/ACETAMINOPHEN [Concomitant]
     Dosage: 3 TABLET, DAILY
     Dates: start: 20111203
  8. OLOPATADINE HCL [Concomitant]
     Indication: PHARYNGITIS
     Dosage: 10 MG, DAILY
     Route: 048
     Dates: start: 20041013
  9. MUCODYNE [Concomitant]
     Indication: PHARYNGITIS
     Dosage: 1500 MG, DAILY
     Route: 048
     Dates: start: 20041227
  10. DICLOFENAC SODIUM [Concomitant]
     Indication: PAIN IN EXTREMITY
     Dosage: 50 MG, DAILY
     Route: 061
     Dates: start: 20111001
  11. LYRICA [Concomitant]
     Dosage: 25 MG, DAILY
     Route: 048
     Dates: start: 20111030, end: 20111218
  12. AMOBAN [Concomitant]
     Route: 048
  13. ZALTOPROFEN [Concomitant]
     Indication: PAIN IN EXTREMITY
     Dosage: 240 MG, DAILY
     Route: 048
     Dates: start: 20110929
  14. ADENOSINE [Concomitant]
     Indication: PHARYNGITIS
     Dosage: 60 MG, DAILY
     Dates: start: 20040830
  15. ALPRAZOLAM [Concomitant]
     Indication: PHARYNGITIS
     Dosage: 0.8 MG, DAILY
     Dates: start: 20050325
  16. URSO                               /00465701/ [Concomitant]
     Route: 048
  17. DICLOFENAC SODIUM [Concomitant]
     Route: 048

REACTIONS (3)
  - CARDIAC FAILURE [None]
  - DEPRESSED LEVEL OF CONSCIOUSNESS [None]
  - RESPIRATORY DEPRESSION [None]
